FAERS Safety Report 5156296-4 (Version None)
Quarter: 2006Q4

REPORT INFORMATION
  Report Type: 
  Country: None (occurrence: None)
  Receive Date: 20061122
  Receipt Date: 20061120
  Transmission Date: 20070319
  Serious: Yes (Hospitalization)
  Sender: FDA-Public Use
  Company Number: US-GLAXOSMITHKLINE-A0628125A

PATIENT
  Age: 52 Year
  Sex: Female

DRUGS (4)
  1. AVANDIA [Suspect]
     Indication: DIABETES MELLITUS NON-INSULIN-DEPENDENT
     Dosage: 8MG PER DAY
     Route: 048
     Dates: start: 20040101
  2. LISINOPRIL [Concomitant]
  3. GLYBURIDE [Concomitant]
  4. ATENOLOL [Concomitant]

REACTIONS (3)
  - BREAST PAIN [None]
  - CHEST PAIN [None]
  - HEPATOMEGALY [None]
